FAERS Safety Report 13260904 (Version 1)
Quarter: 2017Q1

REPORT INFORMATION
  Report Type: Spontaneous
  Country: US (occurrence: US)
  Receive Date: 20170222
  Receipt Date: 20170222
  Transmission Date: 20170428
  Serious: Yes (Other)
  Sender: FDA-Public Use
  Company Number: US-SA-2017SA028326

PATIENT
  Sex: Female
  Weight: 49.8 kg

DRUGS (2)
  1. ALIROCUMAB PREFILLED PEN [Concomitant]
     Active Substance: ALIROCUMAB
  2. PRALUENT [Suspect]
     Active Substance: ALIROCUMAB
     Route: 065

REACTIONS (5)
  - Musculoskeletal stiffness [Unknown]
  - Condition aggravated [Unknown]
  - Weight decreased [Unknown]
  - Abasia [Unknown]
  - Depression [Unknown]
